FAERS Safety Report 8181686-5 (Version None)
Quarter: 2012Q1

REPORT INFORMATION
  Report Type: 
  Country: None (occurrence: None)
  Receive Date: 20120301
  Receipt Date: 20120301
  Transmission Date: 20120608
  Serious: Yes (Other)
  Sender: FDA-Public Use
  Company Number: None

PATIENT
  Age: 75 Year
  Sex: Female
  Weight: 90.7194 kg

DRUGS (1)
  1. OXCARBAZEPINE [Suspect]
     Indication: BIPOLAR DISORDER
     Dosage: 150 MG (1) TABLET BEDTIME DAILY
     Dates: start: 20120103

REACTIONS (7)
  - NAUSEA [None]
  - ABDOMINAL PAIN UPPER [None]
  - CONTUSION [None]
  - VOMITING [None]
  - URINE OUTPUT DECREASED [None]
  - HEADACHE [None]
  - DYSPEPSIA [None]
